FAERS Safety Report 18070100 (Version 1)
Quarter: 2020Q3

REPORT INFORMATION
  Report Type: Report from Study
  Country: AR (occurrence: AR)
  Receive Date: 20200727
  Receipt Date: 20200727
  Transmission Date: 20201103
  Serious: Yes (Other)
  Sender: FDA-Public Use
  Company Number: AR-EMD SERONO-9175342

PATIENT
  Sex: Female

DRUGS (1)
  1. REBIF [Suspect]
     Active Substance: INTERFERON BETA-1A
     Indication: MULTIPLE SCLEROSIS
     Route: 058
     Dates: start: 20161124

REACTIONS (7)
  - Cardiac failure [Unknown]
  - Renal failure [Unknown]
  - Irritable bowel syndrome [Unknown]
  - Visual impairment [Unknown]
  - Multiple sclerosis [Unknown]
  - Deafness [Unknown]
  - Dyspnoea [Unknown]
